FAERS Safety Report 10708093 (Version 3)
Quarter: 2015Q1

REPORT INFORMATION
  Report Type: Spontaneous
  Country: US (occurrence: US)
  Receive Date: 20150113
  Receipt Date: 20150217
  Transmission Date: 20150721
  Serious: Yes (Hospitalization)
  Sender: FDA-Public Use
  Company Number: US-PFIZER INC-2014318510

PATIENT
  Age: 36 Year
  Sex: Male

DRUGS (1)
  1. REVATIO [Suspect]
     Active Substance: SILDENAFIL CITRATE
     Indication: CARDIAC FAILURE CONGESTIVE
     Dosage: 60 MG, 3X/DAY (20 MG X 3 TABS, 3 X DAILY)
     Dates: start: 201010

REACTIONS (3)
  - Cardiac failure congestive [Recovered/Resolved]
  - Renal disorder [Recovered/Resolved]
  - Trisomy 21 [Recovered/Resolved]
